FAERS Safety Report 7916443-5 (Version None)
Quarter: 2011Q4

REPORT INFORMATION
  Report Type: 
  Country: None (occurrence: None)
  Receive Date: 20111116
  Receipt Date: 20111108
  Transmission Date: 20120403
  Serious: Yes (Hospitalization)
  Sender: FDA-Public Use
  Company Number: US-AMGEN-USASP2011058612

PATIENT
  Age: 49 Year
  Sex: Female

DRUGS (2)
  1. ENBREL [Suspect]
     Indication: RHEUMATOID ARTHRITIS
     Dosage: 50 MG, QWK
     Dates: start: 20110201
  2. ANTIBIOTICS [Concomitant]

REACTIONS (5)
  - GASTRIC BYPASS [None]
  - SINUSITIS [None]
  - BRONCHITIS [None]
  - DIARRHOEA [None]
  - LARYNGITIS [None]
